FAERS Safety Report 5201871-1 (Version None)
Quarter: 2007Q1

REPORT INFORMATION
  Report Type: 
  Country: None (occurrence: None)
  Receive Date: 20070104
  Receipt Date: 20061221
  Transmission Date: 20070707
  Serious: Yes (Life-Threatening)
  Sender: FDA-Public Use
  Company Number: 2006-03207

PATIENT
  Age: 59 Year

DRUGS (6)
  1. VELCADE [Suspect]
     Indication: MULTIPLE MYELOMA
     Dosage: UNKNOWN
  2. DOXORUBICIN HCL [Suspect]
     Indication: MULTIPLE MYELOMA
  3. DEXAMETHASONE [Suspect]
     Indication: MULTIPLE MYELOMA
  4. MELPHALAN (MELPHALAN) VIAL [Suspect]
     Indication: MULTIPLE MYELOMA
  5. OMEPRAZOLE [Concomitant]
  6. MORPHINE [Concomitant]

REACTIONS (3)
  - ENCEPHALITIS HERPES [None]
  - HEPATITIS VIRAL [None]
  - HERPES VIRUS INFECTION [None]
